FAERS Safety Report 6434209-2 (Version None)
Quarter: 2009Q4

REPORT INFORMATION
  Report Type: 
  Country: None (occurrence: None)
  Receive Date: 20091110
  Receipt Date: 20090421
  Transmission Date: 20100525
  Serious: No
  Sender: FDA-Public Use
  Company Number: US-ASTRAZENECA-2009SE08928

PATIENT
  Sex: Male

DRUGS (2)
  1. PRILOSEC OTC [Suspect]
     Dosage: 1 TABLET, 1 /DAY FOR 10 DAYS
     Route: 048
     Dates: start: 20090407, end: 20090416
  2. CARDIAC THERAPY [Concomitant]

REACTIONS (2)
  - VISUAL IMPAIRMENT [None]
  - WEIGHT INCREASED [None]
